FAERS Safety Report 10997712 (Version 4)
Quarter: 2015Q2

REPORT INFORMATION
  Report Type: Spontaneous
  Country: US (occurrence: US)
  Receive Date: 20150408
  Receipt Date: 20150612
  Transmission Date: 20150821
  Serious: No
  Sender: FDA-Public Use
  Company Number: US-PFIZER INC-2015114961

PATIENT
  Age: 63 Year
  Sex: Male

DRUGS (4)
  1. ADVIL PM [Suspect]
     Active Substance: DIPHENHYDRAMINE CITRATE\IBUPROFEN
     Indication: INSOMNIA
  2. ADVIL PM [Suspect]
     Active Substance: DIPHENHYDRAMINE CITRATE\IBUPROFEN
     Indication: PAIN
     Dosage: 2 CAPLETS IN THE MORNING
     Dates: start: 201503
  3. ADVIL PM [Suspect]
     Active Substance: DIPHENHYDRAMINE CITRATE\IBUPROFEN
     Indication: INSOMNIA
  4. ADVIL PM [Suspect]
     Active Substance: DIPHENHYDRAMINE CITRATE\IBUPROFEN
     Indication: PAIN
     Dosage: 2 LIQUIGELS IN THE EVENING
     Dates: start: 201503

REACTIONS (4)
  - Intentional product use issue [Unknown]
  - Pain [Not Recovered/Not Resolved]
  - Drug ineffective [Not Recovered/Not Resolved]
  - Somnolence [Not Recovered/Not Resolved]

NARRATIVE: CASE EVENT DATE: 201503
